FAERS Safety Report 24526675 (Version 1)
Quarter: 2024Q4

REPORT INFORMATION
  Report Type: Report from Study
  Country: JP (occurrence: JP)
  Receive Date: 20241021
  Receipt Date: 20241021
  Transmission Date: 20250115
  Serious: No
  Sender: ROCHE
  Company Number: JP-CHUGAI-2021022832

PATIENT
  Age: 1 Year
  Sex: Female
  Weight: 6.63 kg

DRUGS (4)
  1. ZELBORAF [Suspect]
     Active Substance: VEMURAFENIB
     Indication: Langerhans^ cell histiocytosis
     Route: 065
     Dates: start: 20210915, end: 20211213
  2. ZELBORAF [Suspect]
     Active Substance: VEMURAFENIB
     Route: 065
     Dates: start: 20211214, end: 20230409
  3. ZELBORAF [Suspect]
     Active Substance: VEMURAFENIB
     Dosage: 200 MILLIGRAM, QD
     Route: 065
     Dates: start: 20230410
  4. SULFAMETHOXAZOLE\TRIMETHOPRIM [Concomitant]
     Active Substance: SULFAMETHOXAZOLE\TRIMETHOPRIM
     Indication: Chemotherapy side effect prophylaxis
     Dosage: 0.3 GRAM, TIW
     Route: 048
     Dates: end: 20220207

REACTIONS (2)
  - Off label use [Unknown]
  - No adverse event [Unknown]
